FAERS Safety Report 12466452 (Version 5)
Quarter: 2016Q3

REPORT INFORMATION
  Report Type: Spontaneous
  Country: DE (occurrence: DE)
  Receive Date: 20160615
  Receipt Date: 20160718
  Transmission Date: 20161109
  Serious: Yes (Death, Hospitalization, Other)
  Sender: FDA-Public Use
  Company Number: DE-ROCHE-1774572

PATIENT
  Age: 84 Year
  Sex: Female
  Weight: 50 kg

DRUGS (12)
  1. JANUVIA [Concomitant]
     Active Substance: SITAGLIPTIN PHOSPHATE
     Indication: PRODUCT USED FOR UNKNOWN INDICATION
     Dosage: 50 MG, QD (MORNING)
     Route: 065
  2. IMODIUM [Concomitant]
     Active Substance: LOPERAMIDE HYDROCHLORIDE
     Indication: PRODUCT USED FOR UNKNOWN INDICATION
     Dosage: UNK
     Route: 065
  3. LUCENTIS [Suspect]
     Active Substance: RANIBIZUMAB
     Indication: MACULAR OEDEMA
     Dosage: 0.5 MG, UNK, 1 SEPARATE DOSE
     Route: 031
     Dates: start: 20160211
  4. TOREM [Concomitant]
     Active Substance: TORSEMIDE
     Indication: PRODUCT USED FOR UNKNOWN INDICATION
     Dosage: 5 MG, BID (MORNING AND AFTERNOON)
     Route: 065
  5. LUCENTIS [Suspect]
     Active Substance: RANIBIZUMAB
     Dosage: 0.5 ML, UNK, 1 SEPARATE DOSE
     Route: 031
     Dates: start: 20160406
  6. PANTOPRAZOLE [Concomitant]
     Active Substance: PANTOPRAZOLE SODIUM
     Indication: PRODUCT USED FOR UNKNOWN INDICATION
     Dosage: 20 MG, QD (MORNING)
     Route: 065
  7. LUCENTIS [Suspect]
     Active Substance: RANIBIZUMAB
     Indication: RETINAL VEIN OCCLUSION
     Dosage: 0.5 ML, UNK, 1 SEPARATE DOSE
     Route: 031
     Dates: start: 20160310
  8. RAMIPRIL. [Concomitant]
     Active Substance: RAMIPRIL
     Indication: PRODUCT USED FOR UNKNOWN INDICATION
     Dosage: 5 MG, QD (MORNING)
     Route: 065
  9. LUCENTIS [Suspect]
     Active Substance: RANIBIZUMAB
     Dosage: 0.5 ML, UNK, 1 SEPARATE DOSE
     Route: 031
     Dates: start: 20160511, end: 20160511
  10. METAMIZOLE SODIUM [Concomitant]
     Active Substance: METAMIZOLE SODIUM
     Indication: PRODUCT USED FOR UNKNOWN INDICATION
     Dosage: (MORNING, AFTERNOON AND EVENING)
     Route: 065
  11. VALORON N [Concomitant]
     Active Substance: NALOXONE HYDROCHLORIDE\TILIDINE HYDROCHLORIDE
     Indication: PRODUCT USED FOR UNKNOWN INDICATION
     Dosage: 1 DF, BID (MORNING AND EVENING)
     Route: 065
  12. AQUAPHOR [Concomitant]
     Active Substance: PETROLATUM
     Indication: PRODUCT USED FOR UNKNOWN INDICATION
     Dosage: 10 MG, QD (MORNING)
     Route: 065

REACTIONS (39)
  - Oedema peripheral [Recovering/Resolving]
  - Pneumonia [Unknown]
  - Acute kidney injury [Unknown]
  - Spinal osteoarthritis [Unknown]
  - Hypotension [Unknown]
  - Spondylolisthesis [Unknown]
  - Tricuspid valve incompetence [Unknown]
  - Ascites [Unknown]
  - General physical health deterioration [Unknown]
  - Pleural effusion [Unknown]
  - Tachyarrhythmia [Unknown]
  - Urine output decreased [Recovering/Resolving]
  - Aortic arteriosclerosis [Unknown]
  - Spinal flattening [Unknown]
  - Ejection fraction abnormal [Unknown]
  - Bone density decreased [Unknown]
  - Aortic stenosis [Unknown]
  - Arteriosclerosis [Unknown]
  - Faecaloma [Unknown]
  - Pulmonary hypertension [Unknown]
  - Left ventricular dysfunction [Unknown]
  - Pulmonary fibrosis [Unknown]
  - Portal vein dilatation [Unknown]
  - Cardiac imaging procedure abnormal [Unknown]
  - Polycystic ovaries [Unknown]
  - Emphysema [Unknown]
  - Sepsis [Unknown]
  - Hepatic vein dilatation [Unknown]
  - Diastolic dysfunction [Unknown]
  - Scoliosis [Unknown]
  - Kyphosis [Unknown]
  - Acute myocardial infarction [Fatal]
  - Inflammation [Recovering/Resolving]
  - Osteochondrosis [Unknown]
  - Left ventricular failure [Unknown]
  - General physical condition abnormal [Fatal]
  - Mitral valve incompetence [Unknown]
  - Hypokinesia [Unknown]
  - Hepatomegaly [Unknown]

NARRATIVE: CASE EVENT DATE: 20160511
